FAERS Safety Report 16230768 (Version 3)
Quarter: 2022Q2

REPORT INFORMATION
  Report Type: Spontaneous
  Country: US (occurrence: None)
  Receive Date: 20190423
  Receipt Date: 20220629
  Transmission Date: 20220721
  Serious: Yes (Other)
  Sender: FDA-Public Use
  Company Number: 2019SE58761

PATIENT
  Age: 19271 Day
  Sex: Female
  Weight: 123.8 kg

DRUGS (50)
  1. NEXIUM [Suspect]
     Active Substance: ESOMEPRAZOLE MAGNESIUM
     Indication: Gastrooesophageal reflux disease
     Route: 048
     Dates: start: 200807, end: 201509
  2. NEXIUM [Suspect]
     Active Substance: ESOMEPRAZOLE MAGNESIUM
     Indication: Gastrooesophageal reflux disease
     Route: 048
     Dates: start: 2007, end: 2016
  3. NEXIUM [Suspect]
     Active Substance: ESOMEPRAZOLE MAGNESIUM
     Indication: Gastrooesophageal reflux disease
     Dosage: GENERIC
     Route: 065
     Dates: end: 2017
  4. NEXIUM [Suspect]
     Active Substance: ESOMEPRAZOLE MAGNESIUM
     Indication: Gastrooesophageal reflux disease
     Dosage: GENERIC
     Route: 065
     Dates: start: 2015
  5. OMEPRAZOLE [Suspect]
     Active Substance: OMEPRAZOLE
     Indication: Gastrooesophageal reflux disease
     Dosage: GENERIC
     Route: 065
     Dates: start: 2012
  6. PROTONIX [Suspect]
     Active Substance: PANTOPRAZOLE SODIUM
     Indication: Gastrooesophageal reflux disease
     Route: 065
     Dates: start: 200807, end: 201509
  7. PROTONIX [Suspect]
     Active Substance: PANTOPRAZOLE SODIUM
     Indication: Gastrooesophageal reflux disease
     Dosage: GENERIC
     Route: 065
     Dates: start: 2011, end: 2017
  8. PROTONIX [Suspect]
     Active Substance: PANTOPRAZOLE SODIUM
     Indication: Gastrooesophageal reflux disease
     Route: 065
     Dates: start: 2008, end: 2017
  9. PREVACID [Suspect]
     Active Substance: LANSOPRAZOLE
     Indication: Gastrooesophageal reflux disease
     Route: 065
     Dates: start: 2005, end: 2016
  10. BENAZEPRIL [Concomitant]
     Active Substance: BENAZEPRIL HYDROCHLORIDE
     Indication: Hypertension
     Dates: start: 2010
  11. DOXEPIN [Concomitant]
     Active Substance: DOXEPIN
     Indication: Depression
     Dates: start: 20150603, end: 2016
  12. DOXEPIN [Concomitant]
     Active Substance: DOXEPIN
     Indication: Anxiety
     Dates: start: 20150603, end: 2016
  13. TORSEMIDE [Concomitant]
     Active Substance: TORSEMIDE
     Indication: Renal disorder
  14. FLUOXETINE HYDROCHLORIDE [Concomitant]
     Active Substance: FLUOXETINE HYDROCHLORIDE
     Indication: Antidepressant drug level
     Dates: start: 20090409
  15. ZITHROMAX [Concomitant]
     Active Substance: AZITHROMYCIN DIHYDRATE
     Indication: Infection
  16. DIOVAN [Concomitant]
     Active Substance: VALSARTAN
     Indication: Hypertension
     Dates: start: 2009, end: 2011
  17. CARVEDILOL [Concomitant]
     Active Substance: CARVEDILOL
  18. AMBIEN [Concomitant]
     Active Substance: ZOLPIDEM TARTRATE
  19. ATORVASTATIN [Concomitant]
     Active Substance: ATORVASTATIN
  20. FUROSEMIDE [Concomitant]
     Active Substance: FUROSEMIDE
  21. HYDROCODONE [Concomitant]
     Active Substance: HYDROCODONE
  22. ACETAMINOPHEN [Concomitant]
     Active Substance: ACETAMINOPHEN
     Indication: Pain
     Dates: start: 2017
  23. IRON [Concomitant]
     Active Substance: IRON
  24. LINZESS [Concomitant]
     Active Substance: LINACLOTIDE
  25. VITAMINS [Concomitant]
     Active Substance: VITAMINS
  26. RISPERIDONE [Concomitant]
     Active Substance: RISPERIDONE
  27. VALACYCLOVIR HYDROCHLORIDE [Concomitant]
     Active Substance: VALACYCLOVIR HYDROCHLORIDE
  28. VALSARTAN [Concomitant]
     Active Substance: VALSARTAN
  29. VITAMIN E [Concomitant]
     Active Substance: .ALPHA.-TOCOPHEROL
  30. NYSTATIN [Concomitant]
     Active Substance: NYSTATIN
  31. DICYCLOMINE [Concomitant]
     Active Substance: DICYCLOMINE HYDROCHLORIDE
  32. MONTELUKAST [Concomitant]
     Active Substance: MONTELUKAST SODIUM
  33. FLONASE [Concomitant]
     Active Substance: FLUTICASONE PROPIONATE
  34. MORPHINE [Concomitant]
     Active Substance: MORPHINE
  35. VENTOLIN [Concomitant]
     Active Substance: ALBUTEROL SULFATE
  36. TIZANIDINE [Concomitant]
     Active Substance: TIZANIDINE
  37. PROMETHAZINE [Concomitant]
     Active Substance: PROMETHAZINE HYDROCHLORIDE
  38. SYMBICORT [Concomitant]
     Active Substance: BUDESONIDE\FORMOTEROL FUMARATE DIHYDRATE
  39. TOPAMAX [Concomitant]
     Active Substance: TOPIRAMATE
  40. CLONAZEPAM [Concomitant]
     Active Substance: CLONAZEPAM
  41. LORTAB [Concomitant]
     Active Substance: ACETAMINOPHEN\HYDROCODONE BITARTRATE
  42. PENICILLIN [Concomitant]
     Active Substance: PENICILLIN
  43. LEVOCETIRIZINE [Concomitant]
     Active Substance: LEVOCETIRIZINE
  44. RIZATRIPTAN [Concomitant]
     Active Substance: RIZATRIPTAN
  45. ABILIFY [Concomitant]
     Active Substance: ARIPIPRAZOLE
  46. SEROQUEL [Concomitant]
     Active Substance: QUETIAPINE FUMARATE
  47. ZOFRAN [Concomitant]
     Active Substance: ONDANSETRON HYDROCHLORIDE
  48. VOLTAREN [Concomitant]
     Active Substance: DICLOFENAC SODIUM
  49. TRAMADOL [Concomitant]
     Active Substance: TRAMADOL
     Indication: Pain
     Dates: start: 20100715, end: 2011
  50. RANITIDINE [Concomitant]
     Active Substance: RANITIDINE
     Indication: Gastrooesophageal reflux disease
     Dates: start: 2011, end: 2017

REACTIONS (5)
  - Chronic kidney disease [Not Recovered/Not Resolved]
  - Acute kidney injury [Not Recovered/Not Resolved]
  - Renal failure [Unknown]
  - Tubulointerstitial nephritis [Unknown]
  - Gastrooesophageal reflux disease [Not Recovered/Not Resolved]

NARRATIVE: CASE EVENT DATE: 20140820
